FAERS Safety Report 16243660 (Version 1)
Quarter: 2019Q2

REPORT INFORMATION
  Report Type: Spontaneous
  Country: US (occurrence: US)
  Receive Date: 20190426
  Receipt Date: 20190426
  Transmission Date: 20190711
  Serious: No
  Sender: FDA-Public Use
  Company Number: US-PFIZER INC-2019178463

PATIENT
  Age: 67 Year
  Sex: Female
  Weight: 95 kg

DRUGS (1)
  1. LYRICA [Suspect]
     Active Substance: PREGABALIN
     Indication: FIBROMYALGIA
     Dosage: 75 MG, 2X/DAY

REACTIONS (3)
  - Pain [Recovering/Resolving]
  - Drug hypersensitivity [Unknown]
  - Hypoacusis [Not Recovered/Not Resolved]
